FAERS Safety Report 20090676 (Version 1)
Quarter: 2021Q4

REPORT INFORMATION
  Report Type: Spontaneous
  Country: US (occurrence: US)
  Receive Date: 20211119
  Receipt Date: 20211119
  Transmission Date: 20220304
  Serious: Yes (Other)
  Sender: FDA-Public Use
  Company Number: US-PFIZER INC-202101541493

PATIENT
  Age: 81 Year
  Sex: Female
  Weight: 80.5 kg

DRUGS (3)
  1. AMIODARONE HYDROCHLORIDE [Suspect]
     Active Substance: AMIODARONE HYDROCHLORIDE
     Dosage: UNK
  2. TIKOSYN [Suspect]
     Active Substance: DOFETILIDE
     Dosage: 125 UG, 2X/DAY(TIKOSYN 125 MCG Q 12 HRS)
     Route: 048
     Dates: start: 20211004
  3. DRONEDARONE [Suspect]
     Active Substance: DRONEDARONE
     Dosage: UNK

REACTIONS (4)
  - Parkinson^s disease [Unknown]
  - Tremor [Unknown]
  - Lethargy [Unknown]
  - Fatigue [Unknown]
